FAERS Safety Report 25210410 (Version 1)
Quarter: 2025Q2

REPORT INFORMATION
  Report Type: Spontaneous
  Country: US (occurrence: US)
  Receive Date: 20250417
  Receipt Date: 20250417
  Transmission Date: 20250716
  Serious: Yes (Other)
  Sender: TEVA
  Company Number: US-TEVA-VS-3318108

PATIENT
  Age: 69 Year
  Sex: Female
  Weight: 66.224 kg

DRUGS (2)
  1. AJOVY [Suspect]
     Active Substance: FREMANEZUMAB-VFRM
     Indication: Vestibular migraine
     Dosage: 1 INJECTION MONTHLY
     Route: 065
     Dates: start: 2024
  2. AJOVY [Suspect]
     Active Substance: FREMANEZUMAB-VFRM

REACTIONS (7)
  - Stent placement [Unknown]
  - Blood pressure difference of extremities [Unknown]
  - Drug ineffective for unapproved indication [Unknown]
  - Product prescribing issue [Unknown]
  - Dizziness [Unknown]
  - Stenosis [Unknown]
  - Fall [Unknown]

NARRATIVE: CASE EVENT DATE: 20240101
